FAERS Safety Report 5078995-5 (Version None)
Quarter: 2006Q3

REPORT INFORMATION
  Report Type: 
  Country: None (occurrence: None)
  Receive Date: 20060808
  Receipt Date: 20060727
  Transmission Date: 20061208
  Serious: Yes (Hospitalization)
  Sender: FDA-Public Use
  Company Number: 227998

PATIENT
  Sex: Female

DRUGS (1)
  1. RAPTIVA [Suspect]

REACTIONS (1)
  - STAPHYLOCOCCAL INFECTION [None]
